FAERS Safety Report 5707787-6 (Version None)
Quarter: 2008Q2

REPORT INFORMATION
  Report Type: 
  Country: None (occurrence: None)
  Receive Date: 20080417
  Receipt Date: 20080407
  Transmission Date: 20081010
  Serious: Yes (Other)
  Sender: FDA-Public Use
  Company Number: US-JNJFOC-20080101271

PATIENT
  Sex: Male
  Weight: 87.54 kg

DRUGS (5)
  1. DURAGESIC-100 [Suspect]
     Indication: BACK PAIN
     Route: 062
  2. LORTAB [Concomitant]
     Indication: BREAKTHROUGH PAIN
     Route: 048
  3. LYRICA [Concomitant]
     Indication: NEURALGIA
     Route: 048
  4. LEXAPRO [Concomitant]
     Indication: NERVOUSNESS
     Route: 048
  5. VALIUM [Concomitant]
     Indication: NERVOUSNESS
     Dosage: AS NEEDED
     Route: 048

REACTIONS (3)
  - DERMATITIS CONTACT [None]
  - WEIGHT INCREASED [None]
  - WRONG TECHNIQUE IN DRUG USAGE PROCESS [None]
